FAERS Safety Report 5280893-9 (Version None)
Quarter: 2007Q1

REPORT INFORMATION
  Report Type: 
  Country: None (occurrence: None)
  Receive Date: 20061229
  Receipt Date: 20060705
  Transmission Date: 20070707
  Serious: Yes (Other)
  Sender: FDA-Public Use
  Company Number: 2006UW13894

PATIENT
  Sex: Female

DRUGS (1)
  1. CRESTOR [Suspect]
     Dosage: 10 MG ONCE PO
     Route: 048
     Dates: start: 20060601, end: 20060601

REACTIONS (4)
  - ASTHENIA [None]
  - MUSCLE SPASMS [None]
  - MYALGIA [None]
  - WEIGHT INCREASED [None]
